FAERS Safety Report 23637172 (Version 5)
Quarter: 2024Q4

REPORT INFORMATION
  Report Type: Report from Study
  Country: JP (occurrence: JP)
  Receive Date: 20240315
  Receipt Date: 20241122
  Transmission Date: 20250115
  Serious: Yes (Hospitalization)
  Sender: ROCHE
  Company Number: JP-CHUGAI-2022029937

PATIENT
  Age: 36 Year
  Sex: Female
  Weight: 84.0 kg

DRUGS (18)
  1. ENSPRYNG [Suspect]
     Active Substance: SATRALIZUMAB-MWGE
     Indication: Neuromyelitis optica spectrum disorder
     Dosage: 120 MILLIGRAM, ONCE/2WEEKS
     Route: 058
     Dates: start: 20201118, end: 20201228
  2. ENSPRYNG [Suspect]
     Active Substance: SATRALIZUMAB-MWGE
     Dosage: 120 MILLIGRAM, ONCE/4WEEKS
     Route: 058
     Dates: start: 20210125
  3. PREDONINE [Concomitant]
     Active Substance: PREDNISOLONE
     Indication: Neuromyelitis optica spectrum disorder
     Dosage: 15MG/DAY
     Route: 048
     Dates: start: 20200928, end: 20210110
  4. PREDONINE [Concomitant]
     Active Substance: PREDNISOLONE
     Dosage: 10MG/DAY
     Route: 048
     Dates: start: 20210125, end: 20210321
  5. PREDONINE [Concomitant]
     Active Substance: PREDNISOLONE
     Dosage: 8MG/DAY
     Route: 048
     Dates: start: 20210322, end: 20210418
  6. PREDONINE [Concomitant]
     Active Substance: PREDNISOLONE
     Dosage: 7MG/DAY
     Route: 048
     Dates: start: 20210419, end: 20210614
  7. PREDONINE [Concomitant]
     Active Substance: PREDNISOLONE
     Dosage: 6MG/DAY
     Route: 048
     Dates: start: 20210615, end: 20210711
  8. PREDONINE [Concomitant]
     Active Substance: PREDNISOLONE
     Dosage: 5MG/DAY
     Route: 048
     Dates: start: 20210712, end: 20210905
  9. PREDONINE [Concomitant]
     Active Substance: PREDNISOLONE
     Dosage: 4MG/DAY
     Route: 048
     Dates: start: 20210906, end: 20211226
  10. PREDONINE [Concomitant]
     Active Substance: PREDNISOLONE
     Dosage: 3MG/DAY
     Route: 048
     Dates: start: 20211227, end: 20220508
  11. PREDONINE [Concomitant]
     Active Substance: PREDNISOLONE
     Dosage: 2MG/DAY
     Route: 048
     Dates: start: 20220509, end: 20220612
  12. PREDONINE [Concomitant]
     Active Substance: PREDNISOLONE
     Dosage: 1MG/DAY
     Route: 048
     Dates: start: 20220613, end: 20220821
  13. AZATHIOPRINE [Concomitant]
     Active Substance: AZATHIOPRINE
     Indication: Neuromyelitis optica spectrum disorder
     Route: 065
     Dates: start: 20200928, end: 20230109
  14. AZATHIOPRINE [Concomitant]
     Active Substance: AZATHIOPRINE
     Dosage: 50MG/DAY
     Route: 065
     Dates: start: 20230110, end: 20230305
  15. AZATHIOPRINE [Concomitant]
     Active Substance: AZATHIOPRINE
     Dosage: 25MG/DAY
     Route: 065
     Dates: start: 20230306, end: 20230403
  16. LOXOPROFEN [Concomitant]
     Active Substance: LOXOPROFEN
     Indication: Pain
     Dosage: 120 MG/DAY
     Route: 065
  17. LOXOPROFEN [Concomitant]
     Active Substance: LOXOPROFEN
     Dosage: 120 MG/DAY
     Route: 065
  18. LOXOPROFEN [Concomitant]
     Active Substance: LOXOPROFEN
     Dosage: 120 MG/DAY
     Route: 065

REACTIONS (3)
  - Upper respiratory tract inflammation [Recovered/Resolved]
  - COVID-19 pneumonia [Recovered/Resolved]
  - Blepharospasm [Not Recovered/Not Resolved]

NARRATIVE: CASE EVENT DATE: 20210322
